FAERS Safety Report 4886963-9 (Version None)
Quarter: 2006Q1

REPORT INFORMATION
  Report Type: 
  Country: None (occurrence: None)
  Receive Date: 20060120
  Receipt Date: 20050805
  Transmission Date: 20060701
  Serious: Yes (Hospitalization)
  Sender: FDA-Public Use
  Company Number: US-MERCK-0508USA01481

PATIENT
  Age: 70 Year
  Sex: Female
  Weight: 68 kg

DRUGS (8)
  1. VIOXX [Suspect]
     Indication: OSTEOARTHRITIS
     Route: 048
     Dates: start: 19990801
  2. VIOXX [Suspect]
     Route: 048
     Dates: start: 19990801, end: 20000809
  3. VIOXX [Suspect]
     Route: 048
     Dates: start: 20010801
  4. VIOXX [Suspect]
     Route: 048
     Dates: start: 20040401, end: 20040901
  5. VIOXX [Suspect]
     Route: 048
     Dates: start: 20010615
  6. SYNTHROID [Concomitant]
     Route: 065
  7. DILTIAZEM HYDROCHLORIDE [Concomitant]
     Route: 065
  8. FOSAMAX [Concomitant]
     Route: 065

REACTIONS (26)
  - ARTERIOSCLEROSIS [None]
  - ARTHRALGIA [None]
  - BACK PAIN [None]
  - CHEST PAIN [None]
  - COORDINATION ABNORMAL [None]
  - CORONARY ARTERY DISEASE [None]
  - CORONARY ARTERY STENOSIS [None]
  - DACRYOSTENOSIS ACQUIRED [None]
  - DIZZINESS [None]
  - DRY EYE [None]
  - FACIAL PARESIS [None]
  - FALL [None]
  - FIBROMYALGIA [None]
  - GLUCOSE TOLERANCE IMPAIRED [None]
  - HEADACHE [None]
  - HYPERLIPIDAEMIA [None]
  - INTERVERTEBRAL DISC DEGENERATION [None]
  - MUSCULOSKELETAL CHEST PAIN [None]
  - NASAL DISORDER [None]
  - NO THERAPEUTIC RESPONSE [None]
  - OSTEOPENIA [None]
  - PLANTAR FASCIITIS [None]
  - SOFT TISSUE INJURY [None]
  - SPINAL COLUMN STENOSIS [None]
  - URINARY TRACT INFECTION [None]
  - VERTIGO [None]
